FAERS Safety Report 22165798 (Version 1)
Quarter: 2023Q2

REPORT INFORMATION
  Report Type: Spontaneous
  Country: DK (occurrence: DK)
  Receive Date: 20230403
  Receipt Date: 20230403
  Transmission Date: 20230722
  Serious: Yes (Other)
  Sender: FDA-Public Use
  Company Number: DK-UCBSA-2023015814

PATIENT
  Age: 24 Year
  Sex: Male

DRUGS (9)
  1. LACOSAMIDE [Suspect]
     Active Substance: LACOSAMIDE
     Indication: Generalised tonic-clonic seizure
     Dosage: UNK
  2. VALPROIC ACID [Suspect]
     Active Substance: VALPROIC ACID
     Indication: Generalised tonic-clonic seizure
     Dosage: UNK
  3. METHYLPREDNISOLONE [Concomitant]
     Active Substance: METHYLPREDNISOLONE
     Indication: Limbic encephalitis
     Dosage: HIGH-DOSE I.V. 1 G DAILY.
     Route: 042
  4. IMMUNE GLOBULIN NOS [Concomitant]
     Active Substance: IMMUNE GLOBULIN NOS
     Indication: Limbic encephalitis
     Dosage: 0.4 G/KG/DAILY (IVIG) (TWO 5-DAY TREATMENTS)
     Route: 042
     Dates: start: 2018
  5. RITUXIMAB [Concomitant]
     Active Substance: RITUXIMAB
     Indication: Limbic encephalitis
     Dosage: (4 COURSES OF 375 MG/M2) ONCE A WEEK
     Dates: start: 2018
  6. CEFTRIAXONE [Concomitant]
     Active Substance: CEFTRIAXONE
     Indication: Central nervous system infection
     Dosage: 2 GRAM, 2X/DAY (BID)
     Route: 042
  7. ACYCLOVIR [Concomitant]
     Active Substance: ACYCLOVIR
     Indication: Central nervous system infection
     Dosage: 10 MG/KG I.V. 3 TIMES DAILY
     Route: 042
  8. PREDNISOLONE [Concomitant]
     Active Substance: PREDNISOLONE
     Indication: Myasthenia gravis
     Dosage: UNK
     Route: 048
     Dates: start: 2018
  9. PYRIDOSTIGMINE [Concomitant]
     Active Substance: PYRIDOSTIGMINE
     Indication: Myasthenia gravis
     Dosage: UNK

REACTIONS (1)
  - Autoimmune disorder [Recovering/Resolving]
